FAERS Safety Report 12427070 (Version 1)
Quarter: 2016Q2

REPORT INFORMATION
  Report Type: Spontaneous
  Country: JP (occurrence: JP)
  Receive Date: 20160601
  Receipt Date: 20160601
  Transmission Date: 20160815
  Serious: Yes (Other)
  Sender: FDA-Public Use
  Company Number: JP-BAUSCH-BL-2016-012566

PATIENT
  Age: 22 Year
  Sex: Female

DRUGS (4)
  1. TACROLIMUS. [Suspect]
     Active Substance: TACROLIMUS
     Indication: SYSTEMIC LUPUS ERYTHEMATOSUS
     Route: 065
  2. PREDNISOLONE. [Suspect]
     Active Substance: PREDNISOLONE
     Indication: SYSTEMIC LUPUS ERYTHEMATOSUS
     Route: 048
  3. METHYLPREDNISOLONE. [Suspect]
     Active Substance: METHYLPREDNISOLONE
     Indication: SYSTEMIC LUPUS ERYTHEMATOSUS
     Dosage: PULSE THERAPY (1000 MG/DAY FOR 3 DAYS) CONDUCTED TWICE
     Route: 065
  4. METHYLPREDNISOLONE. [Suspect]
     Active Substance: METHYLPREDNISOLONE
     Indication: SYSTEMIC LUPUS ERYTHEMATOSUS
     Dosage: FOUR COURSES OF 1000 MG/DAY, 3 DAYS
     Route: 065

REACTIONS (7)
  - Thrombocytopenia [Recovered/Resolved]
  - BK virus infection [Recovered/Resolved]
  - Cystitis haemorrhagic [Unknown]
  - Infection reactivation [Recovered/Resolved]
  - Disease recurrence [Unknown]
  - Anaemia [Recovered/Resolved]
  - Histiocytosis haematophagic [Recovered/Resolved]
